FAERS Safety Report 16655874 (Version 1)
Quarter: 2019Q3

REPORT INFORMATION
  Report Type: Spontaneous
  Country: JP (occurrence: JP)
  Receive Date: 20190801
  Receipt Date: 20190801
  Transmission Date: 20191004
  Serious: Yes (Hospitalization, Other)
  Sender: FDA-Public Use
  Company Number: PHHY2019JP171063

PATIENT
  Age: 37 Year
  Sex: Female

DRUGS (2)
  1. PREDNISOLONE. [Concomitant]
     Active Substance: PREDNISOLONE
     Indication: SYSTEMIC LUPUS ERYTHEMATOSUS
     Dosage: 50 MG, UNK (1MG/KG)
     Route: 048
  2. METHYLPREDNISOLONE. [Suspect]
     Active Substance: METHYLPREDNISOLONE
     Indication: SYSTEMIC LUPUS ERYTHEMATOSUS
     Dosage: 1 G, UNK (PULSE THERAPY)
     Route: 042
     Dates: start: 2011

REACTIONS (7)
  - Tricuspid valve incompetence [Unknown]
  - Pericardial effusion [Unknown]
  - Sinus bradycardia [Recovered/Resolved]
  - Ventricular hypokinesia [Unknown]
  - Cardiac failure [Recovered/Resolved]
  - Electrocardiogram QT prolonged [Unknown]
  - Mitral valve incompetence [Unknown]

NARRATIVE: CASE EVENT DATE: 2011
